FAERS Safety Report 20861250 (Version 1)
Quarter: 2022Q2

REPORT INFORMATION
  Report Type: Spontaneous
  Country: US (occurrence: US)
  Receive Date: 20220523
  Receipt Date: 20220523
  Transmission Date: 20220721
  Serious: Yes (Hospitalization, Other)
  Sender: FDA-Public Use
  Company Number: US-AMGEN-USASP2022081452

PATIENT
  Age: 47 Year
  Sex: Male

DRUGS (7)
  1. RITUXIMAB [Suspect]
     Active Substance: RITUXIMAB
     Indication: Diffuse large B-cell lymphoma
     Dosage: UNK
     Route: 065
  2. METHOTREXATE [Suspect]
     Active Substance: METHOTREXATE
     Indication: Diffuse large B-cell lymphoma
     Dosage: UNK
     Route: 065
  3. AMIODARONE [Concomitant]
     Active Substance: AMIODARONE
     Indication: Tachyarrhythmia
     Route: 042
  4. AMIODARONE [Concomitant]
     Active Substance: AMIODARONE
     Route: 048
  5. LIDOCAINE [Concomitant]
     Active Substance: LIDOCAINE
     Indication: Tachyarrhythmia
     Route: 042
  6. EPOCH [Concomitant]
     Active Substance: ALCOHOL\SALICYLIC ACID
     Indication: Diffuse large B-cell lymphoma
  7. OSELTAMIVIR [Concomitant]
     Active Substance: OSELTAMIVIR

REACTIONS (9)
  - Septic shock [Recovered/Resolved]
  - Enterococcal bacteraemia [Recovered/Resolved]
  - Pseudomonal bacteraemia [Recovered/Resolved]
  - Urinary tract infection [Recovered/Resolved]
  - Cholecystitis [Recovered/Resolved]
  - Gallbladder rupture [Recovered/Resolved]
  - Adverse event [Recovered/Resolved]
  - Influenza [Recovered/Resolved]
  - Enterococcal infection [Recovered/Resolved]
